FAERS Safety Report 16750616 (Version 2)
Quarter: 2019Q4

REPORT INFORMATION
  Report Type: Spontaneous
  Country: US (occurrence: US)
  Receive Date: 20190828
  Receipt Date: 20191003
  Transmission Date: 20200122
  Serious: Yes (Other)
  Sender: FDA-Public Use
  Company Number: US-BAYER-2019-158334

PATIENT
  Age: 25 Year
  Sex: Female
  Weight: 79.37 kg

DRUGS (1)
  1. KYLEENA [Suspect]
     Active Substance: LEVONORGESTREL
     Indication: CONTRACEPTION
     Dosage: 17.5 MCG/24HR, CONT
     Route: 015
     Dates: start: 20181008

REACTIONS (2)
  - Genital haemorrhage [Recovering/Resolving]
  - Embedded device [Recovering/Resolving]

NARRATIVE: CASE EVENT DATE: 20190820
